FAERS Safety Report 13133901 (Version 1)
Quarter: 2017Q1

REPORT INFORMATION
  Report Type: Spontaneous
  Country: US (occurrence: US)
  Receive Date: 20170120
  Receipt Date: 20170120
  Transmission Date: 20170428
  Serious: Yes (Hospitalization)
  Sender: FDA-Public Use
  Company Number: US-BIOGEN-2017BI00344878

PATIENT
  Sex: Male

DRUGS (1)
  1. AVONEX [Suspect]
     Active Substance: INTERFERON BETA-1A
     Indication: MULTIPLE SCLEROSIS
     Route: 030
     Dates: start: 19990115

REACTIONS (5)
  - General symptom [Recovered/Resolved]
  - Injection site reaction [Recovered/Resolved]
  - Hypoaesthesia [Recovered/Resolved]
  - Amnesia [Not Recovered/Not Resolved]
  - Genital hypoaesthesia [Recovered/Resolved]

NARRATIVE: CASE EVENT DATE: 2012
